FAERS Safety Report 7345634-X (Version None)
Quarter: 2011Q1

REPORT INFORMATION
  Report Type: 
  Country: None (occurrence: None)
  Receive Date: 20110310
  Receipt Date: 20110302
  Transmission Date: 20110831
  Serious: Yes (Other)
  Sender: FDA-Public Use
  Company Number: A0917194A

PATIENT
  Sex: Female

DRUGS (1)
  1. PAROXETINE [Suspect]
     Dosage: 20MG UNKNOWN
     Route: 064
     Dates: start: 20041018, end: 20050605

REACTIONS (3)
  - CEPHALHAEMATOMA [None]
  - DRUG EXPOSURE DURING PREGNANCY [None]
  - SKULL FRACTURE [None]
